FAERS Safety Report 24978156 (Version 1)
Quarter: 2025Q1

REPORT INFORMATION
  Report Type: Spontaneous
  Country: US (occurrence: US)
  Receive Date: 20250217
  Receipt Date: 20250217
  Transmission Date: 20250409
  Serious: Yes (Other)
  Sender: TIME CAPS
  Company Number: US-Time-Cap Labs, Inc.-2171218

PATIENT
  Age: 24 Year
  Sex: Male

DRUGS (1)
  1. ACETAMINOPHEN [Suspect]
     Active Substance: ACETAMINOPHEN
     Indication: Arthralgia

REACTIONS (4)
  - Anaphylactic reaction [Recovered/Resolved]
  - Product substitution issue [Unknown]
  - Rash [Recovered/Resolved]
  - Urticaria [Recovered/Resolved]
